FAERS Safety Report 9604042 (Version 3)
Quarter: 2014Q3

REPORT INFORMATION
  Report Type: Spontaneous
  Country: CA (occurrence: CA)
  Receive Date: 20131008
  Receipt Date: 20140716
  Transmission Date: 20150326
  Serious: Yes (Other)
  Sender: FDA-Public Use
  Company Number: CA-ROCHE-1285641

PATIENT
  Age: 12 Year
  Sex: Male

DRUGS (8)
  1. XOLAIR [Suspect]
     Active Substance: OMALIZUMAB
     Indication: ASTHMA
     Route: 058
     Dates: start: 20110627
  2. ALVESCO [Concomitant]
     Active Substance: CICLESONIDE
  3. SEREVENT [Concomitant]
     Active Substance: SALMETEROL XINAFOATE
  4. SINGULAIR [Concomitant]
     Active Substance: MONTELUKAST SODIUM
  5. AIROMIR [Concomitant]
     Active Substance: ALBUTEROL SULFATE
  6. KETOTIFEN [Concomitant]
     Active Substance: KETOTIFEN
  7. SODIUM CHLORIDE. [Concomitant]
     Active Substance: SODIUM CHLORIDE
  8. PREVACID [Concomitant]
     Active Substance: LANSOPRAZOLE

REACTIONS (6)
  - Cough [Unknown]
  - Pneumonia [Recovered/Resolved]
  - Ear infection [Recovered/Resolved]
  - Nasopharyngitis [Unknown]
  - Urinary bladder polyp [Unknown]
  - Pyrexia [Recovered/Resolved]

NARRATIVE: CASE EVENT DATE: 201211
